FAERS Safety Report 8216324-6 (Version None)
Quarter: 2012Q1

REPORT INFORMATION
  Report Type: 
  Country: None (occurrence: None)
  Receive Date: 20120316
  Receipt Date: 20120309
  Transmission Date: 20120608
  Serious: Yes (Other)
  Sender: FDA-Public Use
  Company Number: PHHY2012AR021295

PATIENT
  Sex: Female

DRUGS (1)
  1. ONBREZ [Suspect]
     Indication: EMPHYSEMA

REACTIONS (3)
  - COUGH [None]
  - DYSPNOEA [None]
  - INCREASED UPPER AIRWAY SECRETION [None]
